FAERS Safety Report 8894683 (Version 1)
Quarter: 2012Q4

REPORT INFORMATION
  Report Type: 
  Country: AU (occurrence: AU)
  Receive Date: 20121107
  Receipt Date: 20121107
  Transmission Date: 20130627
  Serious: Yes (Death)
  Sender: FDA-Public Use
  Company Number: AU-009507513-1211AUS002450

PATIENT
  Age: 74 Year
  Sex: Female

DRUGS (1)
  1. AVANZA [Suspect]
     Dosage: 20 mg, UNK
     Route: 048
     Dates: start: 20110522

REACTIONS (1)
  - Pneumonia [Fatal]
